FAERS Safety Report 25975013 (Version 1)
Quarter: 2025Q4

REPORT INFORMATION
  Report Type: Spontaneous
  Country: US (occurrence: None)
  Receive Date: 20251029
  Receipt Date: 20251029
  Transmission Date: 20260118
  Serious: Yes (Hospitalization)
  Sender: FDA-CTU
  Company Number: None

PATIENT
  Sex: Male

DRUGS (11)
  1. LENALIDOMIDE [Suspect]
     Active Substance: LENALIDOMIDE
     Indication: Plasma cell myeloma
     Route: 048
     Dates: start: 20251028
  2. ALLEGRA ALRG TAB 180MG [Concomitant]
  3. CALCIUM 600 TAB +D [Concomitant]
  4. DARZALEX  SOL 100MG/5M [Concomitant]
  5. ELIOUIS  TAB 2.5MG [Concomitant]
  6. LORATADINE TAB  10MG [Concomitant]
  7. OXYCODONE  TAB 10MG ER [Concomitant]
  8. PANTOPRAZOLE TAB 40MG [Concomitant]
  9. SENNA   TAB 8.6MG [Concomitant]
  10. VALACYCLOVIR TAB 500MG [Concomitant]
  11. VITAMIN D3 TAB 25MCG [Concomitant]

REACTIONS (6)
  - Acute kidney injury [None]
  - Dysphagia [None]
  - Neuropathy peripheral [None]
  - Blepharitis [None]
  - Chalazion [None]
  - Febrile neutropenia [None]
